FAERS Safety Report 21475500 (Version 1)
Quarter: 2022Q4

REPORT INFORMATION
  Report Type: Spontaneous
  Country: MA (occurrence: MA)
  Receive Date: 20221019
  Receipt Date: 20221019
  Transmission Date: 20230112
  Serious: Yes (Other)
  Sender: FDA-Public Use
  Company Number: None

PATIENT
  Age: 45 Year
  Sex: Female

DRUGS (3)
  1. PREDNISOLONE [Suspect]
     Active Substance: PREDNISOLONE
     Indication: Rheumatoid arthritis
     Dosage: 60 MILLIGRAM PER DAY (TABLET)
     Route: 065
  2. PREDNISOLONE [Suspect]
     Active Substance: PREDNISOLONE
     Dosage: 40 MILLIGRAM (DOSE DECREASED)
     Route: 065
  3. METHOTREXATE [Suspect]
     Active Substance: METHOTREXATE
     Indication: Rheumatoid arthritis
     Dosage: 7.5 MILLIGRAM PER WEEK
     Route: 065

REACTIONS (5)
  - Pneumoperitoneum [Recovered/Resolved]
  - Pulmonary air leakage [Recovered/Resolved]
  - Pneumothorax [Recovered/Resolved]
  - Pneumomediastinum [Recovered/Resolved]
  - Subcutaneous emphysema [Recovered/Resolved]
